FAERS Safety Report 14400317 (Version 1)
Quarter: 2018Q1

REPORT INFORMATION
  Report Type: Spontaneous
  Country: US (occurrence: US)
  Receive Date: 20180117
  Receipt Date: 20180117
  Transmission Date: 20180509
  Serious: Yes (Life-Threatening, Hospitalization, Other)
  Sender: FDA-Public Use
  Company Number: US-APOTEX-2018AP005300

PATIENT
  Age: 51 Year
  Sex: Male
  Weight: 85 kg

DRUGS (3)
  1. LISINOPRIL. [Suspect]
     Active Substance: LISINOPRIL
     Indication: PRODUCT USED FOR UNKNOWN INDICATION
     Dosage: 27 DF, OVER A PERIOD OF THREE OR FEWER DAYSOVER A PERIOD OF THREE OR FEWER DAYS
     Route: 065
  2. ACETAMINOPHEN W/HYDROCODONE [Concomitant]
     Active Substance: ACETAMINOPHEN\HYDROCODONE
     Indication: PRODUCT USED FOR UNKNOWN INDICATION
     Dosage: HYDROCODONE BITARTRATE 5-MG ACETAMINOPHEN 325-MG
     Route: 065
  3. ALPRAZOLAM. [Concomitant]
     Active Substance: ALPRAZOLAM
     Indication: PRODUCT USED FOR UNKNOWN INDICATION
     Dosage: 0.5 MG, UNK
     Route: 065

REACTIONS (8)
  - Uraemic encephalopathy [Recovered/Resolved]
  - Acute kidney injury [Recovering/Resolving]
  - Azotaemia [Recovered/Resolved]
  - Overdose [Unknown]
  - Metabolic acidosis [Recovered/Resolved]
  - Multiple organ dysfunction syndrome [Recovered/Resolved]
  - Hyperkalaemia [Recovered/Resolved]
  - Rhabdomyolysis [Recovered/Resolved]
